FAERS Safety Report 8362255-0 (Version None)
Quarter: 2012Q2

REPORT INFORMATION
  Report Type: 
  Country: None (occurrence: None)
  Receive Date: 20120515
  Receipt Date: 20120430
  Transmission Date: 20120825
  Serious: Yes (Hospitalization)
  Sender: FDA-Public Use
  Company Number: CHPA2012US010158

PATIENT
  Age: 65 Year
  Sex: Male

DRUGS (2)
  1. EXCEDRIN (MIGRAINE) [Suspect]
     Indication: HEADACHE
     Dosage: 2 DF, QD
     Route: 048
  2. EXCEDRIN TENSION HEADACHE CAPLETS [Suspect]
     Dosage: UNK, UNK
     Route: 048

REACTIONS (2)
  - ULCER HAEMORRHAGE [None]
  - DRUG ADMINISTRATION ERROR [None]
